FAERS Safety Report 17117876 (Version 1)
Quarter: 2019Q4

REPORT INFORMATION
  Report Type: Spontaneous
  Country: FR (occurrence: FR)
  Receive Date: 20191205
  Receipt Date: 20191205
  Transmission Date: 20200122
  Serious: Yes (Life-Threatening)
  Sender: FDA-Public Use
  Company Number: FR-MYLANLABS-2019M1119944

PATIENT
  Age: 61 Year
  Sex: Male
  Weight: 67 kg

DRUGS (6)
  1. PACLITAXEL. [Suspect]
     Active Substance: PACLITAXEL
     Indication: BRONCHIAL CARCINOMA
     Dosage: 240 MILLIGRAM, QW
     Route: 041
     Dates: start: 20190506, end: 20190513
  2. CIFLOX                             /00697202/ [Suspect]
     Active Substance: CIPROFLOXACIN HYDROCHLORIDE
     Indication: ANTIBIOTIC THERAPY
     Dosage: 1000 MILLIGRAM, QD
     Route: 048
     Dates: start: 20190502, end: 20190516
  3. ROCEPHINE [Suspect]
     Active Substance: CEFTRIAXONE SODIUM
     Indication: ANTIBIOTIC THERAPY
     Dosage: NON PR?CIS?E
     Route: 041
     Dates: start: 20190419, end: 20190422
  4. CARBOPLATIN. [Suspect]
     Active Substance: CARBOPLATIN
     Indication: BRONCHIAL CARCINOMA
     Dosage: 240 MILLIGRAM, QW
     Route: 041
     Dates: start: 20190506, end: 20190513
  5. PYOSTACINE [Suspect]
     Active Substance: PRISTINAMYCIN
     Indication: DERMO-HYPODERMITIS
     Dosage: 1 GRAM, QD
     Route: 048
     Dates: start: 20190506, end: 20190507
  6. CIFLOX                             /00697202/ [Suspect]
     Active Substance: CIPROFLOXACIN HYDROCHLORIDE
     Indication: ANTIBIOTIC THERAPY
     Dosage: 400 MILLIGRAM, QD
     Route: 041
     Dates: start: 20190422, end: 20190502

REACTIONS (2)
  - Toxic epidermal necrolysis [Recovering/Resolving]
  - Rash erythematous [Recovering/Resolving]

NARRATIVE: CASE EVENT DATE: 20190422
